FAERS Safety Report 13848359 (Version 1)
Quarter: 2017Q3

REPORT INFORMATION
  Report Type: Spontaneous
  Country: US (occurrence: US)
  Receive Date: 20170809
  Receipt Date: 20170809
  Transmission Date: 20171127
  Serious: No
  Sender: FDA-Public Use
  Company Number: US-PURDUE-USA-2017-0139589

PATIENT
  Sex: Female

DRUGS (2)
  1. BUTRANS [Suspect]
     Active Substance: BUPRENORPHINE
     Indication: KNEE ARTHROPLASTY
     Dosage: 20 MCG/HR, WEEKLY
     Route: 062
     Dates: start: 201706
  2. BUTRANS [Suspect]
     Active Substance: BUPRENORPHINE
     Indication: ARTHRALGIA
     Dosage: 20 MCG/HR, WEEKLY
     Route: 062
     Dates: start: 2016, end: 2016

REACTIONS (6)
  - Wrong technique in product usage process [Unknown]
  - Product adhesion issue [Unknown]
  - Application site erythema [Recovered/Resolved]
  - Product use complaint [Unknown]
  - Application site irritation [Unknown]
  - Application site pain [Recovered/Resolved]

NARRATIVE: CASE EVENT DATE: 2016
